FAERS Safety Report 7175652-6 (Version None)
Quarter: 2010Q4

REPORT INFORMATION
  Report Type: 
  Country: None (occurrence: None)
  Receive Date: 20101220
  Receipt Date: 20100325
  Transmission Date: 20110411
  Serious: No
  Sender: FDA-Public Use
  Company Number: US-AMGEN-TCS401903

PATIENT

DRUGS (2)
  1. ENBREL [Suspect]
     Indication: RHEUMATOID ARTHRITIS
     Dosage: 25 MG, 2 TIMES/WK
     Route: 030
     Dates: start: 20010101, end: 20100302
  2. METHOTREXATE [Concomitant]
     Dosage: UNK UNK, UNK
     Dates: end: 20100301

REACTIONS (4)
  - ADVERSE DRUG REACTION [None]
  - ARTHRALGIA [None]
  - DRUG ERUPTION [None]
  - INCORRECT ROUTE OF DRUG ADMINISTRATION [None]
